FAERS Safety Report 7502920-8 (Version None)
Quarter: 2011Q2

REPORT INFORMATION
  Report Type: 
  Country: None (occurrence: None)
  Receive Date: 20110518
  Receipt Date: 20110505
  Transmission Date: 20111010
  Serious: Yes (Hospitalization)
  Sender: FDA-Public Use
  Company Number: TPA2011A01499

PATIENT

DRUGS (1)
  1. ULORIC [Suspect]

REACTIONS (1)
  - STEVENS-JOHNSON SYNDROME [None]
